FAERS Safety Report 11113643 (Version 1)
Quarter: 2015Q2

REPORT INFORMATION
  Report Type: Spontaneous
  Country: CN (occurrence: CN)
  Receive Date: 20150514
  Receipt Date: 20150514
  Transmission Date: 20150821
  Serious: Yes (Other)
  Sender: FDA-Public Use
  Company Number: CN-PFIZER INC-2015157031

PATIENT
  Age: 52 Year
  Sex: Male

DRUGS (3)
  1. ASPIRIN. [Concomitant]
     Active Substance: ASPIRIN
  2. LIPITOR [Suspect]
     Active Substance: ATORVASTATIN CALCIUM
     Dosage: UNK
     Route: 048
     Dates: start: 20150307, end: 20150504
  3. PLAVIX [Concomitant]
     Active Substance: CLOPIDOGREL BISULFATE

REACTIONS (5)
  - Asthenia [Recovering/Resolving]
  - Myalgia [Recovering/Resolving]
  - Taciturnity [Recovering/Resolving]
  - Suicidal ideation [Recovering/Resolving]
  - Illogical thinking [Recovering/Resolving]

NARRATIVE: CASE EVENT DATE: 2015
